FAERS Safety Report 5794815-5 (Version None)
Quarter: 2008Q2

REPORT INFORMATION
  Report Type: 
  Country: None (occurrence: None)
  Receive Date: 20080630
  Receipt Date: 20080620
  Transmission Date: 20081010
  Serious: Yes (Other)
  Sender: FDA-Public Use
  Company Number: B0360898A

PATIENT
  Age: 50 Year
  Sex: Female

DRUGS (3)
  1. PAROXETINE HCL [Suspect]
     Route: 065
     Dates: start: 20000815
  2. PAROXETINE HCL [Suspect]
     Route: 048
  3. TRANEXAMIC ACID [Concomitant]

REACTIONS (42)
  - AFFECT LABILITY [None]
  - AGITATION [None]
  - ALOPECIA [None]
  - ANHEDONIA [None]
  - ANOREXIA [None]
  - ANXIETY [None]
  - ARTHRALGIA [None]
  - ASTHENIA [None]
  - BALANCE DISORDER [None]
  - CANDIDIASIS [None]
  - COORDINATION ABNORMAL [None]
  - COUGH [None]
  - DEPRESSED MOOD [None]
  - DEPRESSION [None]
  - DIARRHOEA [None]
  - DISTURBANCE IN ATTENTION [None]
  - DIZZINESS [None]
  - DRUG WITHDRAWAL SYNDROME [None]
  - DRY SKIN [None]
  - EMOTIONAL DISORDER [None]
  - FEELING HOT [None]
  - GLOSSITIS [None]
  - HEADACHE [None]
  - HYPERHIDROSIS [None]
  - INSOMNIA [None]
  - MALAISE [None]
  - MANIA [None]
  - MENORRHAGIA [None]
  - NAUSEA [None]
  - ONYCHOMYCOSIS [None]
  - PANIC ATTACK [None]
  - PARAESTHESIA [None]
  - PARANOIA [None]
  - PRURITUS [None]
  - RHINITIS [None]
  - SUICIDAL IDEATION [None]
  - THINKING ABNORMAL [None]
  - TINEA PEDIS [None]
  - TREMOR [None]
  - URTICARIA [None]
  - VERTIGO [None]
  - WEIGHT INCREASED [None]
